FAERS Safety Report 25660120 (Version 2)
Quarter: 2025Q3

REPORT INFORMATION
  Report Type: Spontaneous
  Country: US (occurrence: US)
  Receive Date: 20250808
  Receipt Date: 20250909
  Transmission Date: 20251021
  Serious: No
  Sender: VERTEX
  Company Number: US-VERTEX PHARMACEUTICALS-2025-010366

PATIENT

DRUGS (7)
  1. JOURNAVX [Suspect]
     Active Substance: SUZETRIGINE
     Indication: Pain
     Route: 048
  2. TYLENOL [Concomitant]
     Active Substance: ACETAMINOPHEN
     Indication: Pain
     Dosage: 6000 MG, QD
  3. TYLENOL [Concomitant]
     Active Substance: ACETAMINOPHEN
  4. CANNABIS SATIVA SUBSP. INDICA TOP [Concomitant]
     Active Substance: CANNABIS SATIVA SUBSP. INDICA TOP
     Indication: Pain
  5. OXYCODONE [Concomitant]
     Active Substance: OXYCODONE
     Indication: Pain
  6. DIAZEPAM [Concomitant]
     Active Substance: DIAZEPAM
     Indication: Pain
  7. PREGABALIN [Concomitant]
     Active Substance: PREGABALIN
     Indication: Pain

REACTIONS (2)
  - Blood creatine phosphokinase increased [Recovered/Resolved]
  - Off label use [Unknown]
